FAERS Safety Report 15905675 (Version 1)
Quarter: 2019Q1

REPORT INFORMATION
  Report Type: Spontaneous
  Country: ZA (occurrence: ZA)
  Receive Date: 20190204
  Receipt Date: 20190204
  Transmission Date: 20190417
  Serious: Yes (Death)
  Sender: FDA-Public Use
  Company Number: ZA-JNJFOC-20190138344

PATIENT
  Age: 36 Year
  Sex: Male

DRUGS (15)
  1. DELAMANID [Suspect]
     Active Substance: DELAMANID
     Indication: TUBERCULOSIS
     Route: 048
     Dates: start: 20181114
  2. SODIUM VALPROATE [Concomitant]
     Active Substance: VALPROATE SODIUM
     Route: 065
  3. THIAMINE. [Concomitant]
     Active Substance: THIAMINE
     Route: 065
  4. BEDAQUILINE [Suspect]
     Active Substance: BEDAQUILINE
     Indication: TUBERCULOSIS
     Route: 048
     Dates: start: 20180928
  5. LINEZOLID. [Suspect]
     Active Substance: LINEZOLID
     Indication: TUBERCULOSIS
     Route: 048
     Dates: start: 20180928
  6. PARA-AMINOSALICYLIC ACID [Suspect]
     Active Substance: AMINOSALICYLIC ACID
     Indication: TUBERCULOSIS
     Route: 048
     Dates: start: 20180928
  7. EMTRICITABINE [Concomitant]
     Active Substance: EMTRICITABINE
     Route: 065
  8. ABACAVIR. [Concomitant]
     Active Substance: ABACAVIR
     Route: 065
  9. ISONIAZID. [Suspect]
     Active Substance: ISONIAZID
     Indication: TUBERCULOSIS
     Route: 048
     Dates: start: 20180928
  10. BACTRIM [Concomitant]
     Active Substance: SULFAMETHOXAZOLE\TRIMETHOPRIM
     Route: 065
  11. TERIZIDONE [Suspect]
     Active Substance: TERIZIDONE
     Indication: TUBERCULOSIS
     Route: 048
     Dates: start: 20180928
  12. PYRIDOXINE [Concomitant]
     Active Substance: PYRIDOXINE
     Route: 065
  13. LOPINAVIR + RITONAVIR [Concomitant]
     Active Substance: LOPINAVIR\RITONAVIR
     Route: 065
  14. PREGABALIN. [Concomitant]
     Active Substance: PREGABALIN
     Route: 065
  15. CLOFAZIMINE [Suspect]
     Active Substance: CLOFAZIMINE
     Indication: TUBERCULOSIS
     Route: 048
     Dates: start: 20180928

REACTIONS (9)
  - Pulmonary embolism [Fatal]
  - Nausea [Unknown]
  - Constipation [Unknown]
  - Abdominal pain lower [Unknown]
  - Red blood cell count decreased [Unknown]
  - Blood albumin decreased [Unknown]
  - Blood creatinine increased [Unknown]
  - Alanine aminotransferase increased [Unknown]
  - Platelet count decreased [Unknown]

NARRATIVE: CASE EVENT DATE: 20181211
